FAERS Safety Report 24539774 (Version 2)
Quarter: 2024Q4

REPORT INFORMATION
  Report Type: Spontaneous
  Country: US (occurrence: US)
  Receive Date: 20241023
  Receipt Date: 20241028
  Transmission Date: 20250115
  Serious: Yes (Disabling, Other)
  Sender: ADVANZ PHARMA
  Company Number: US-MLMSERVICE-20241002-PI215536-00095-2

PATIENT

DRUGS (2)
  1. HYDROXYCHLOROQUINE [Suspect]
     Active Substance: HYDROXYCHLOROQUINE
     Indication: Systemic lupus erythematosus
     Dosage: 400 MG, QD (400 MG, QD (DAILY DOSE 6.25 MG/KG OF BODY WEIGHT; CUMULATIVE DOSE OVER 1800 G) (PLAQUENI
  2. HYDROXYCHLOROQUINE [Suspect]
     Active Substance: HYDROXYCHLOROQUINE
     Dosage: 400 MG, QD (DAILY DOSE 6.25 MG/KG OF BODY WEIGHT; CUMULATIVE DOSE OVER 1800 G

REACTIONS (4)
  - Autoimmune retinopathy [Not Recovered/Not Resolved]
  - Optic neuropathy [Not Recovered/Not Resolved]
  - Maculopathy [Not Recovered/Not Resolved]
  - Overdose [Unknown]
